FAERS Safety Report 12604257 (Version 1)
Quarter: 2016Q3

REPORT INFORMATION
  Report Type: Spontaneous
  Country: US (occurrence: US)
  Receive Date: 20160728
  Receipt Date: 20160728
  Transmission Date: 20161109
  Serious: No
  Sender: FDA-Public Use
  Company Number: US-ENDO PHARMACEUTICALS INC.-2016-003269

PATIENT
  Age: 58 Year
  Sex: Female
  Weight: 93.07 kg

DRUGS (1)
  1. BELBUCA [Suspect]
     Active Substance: BUPRENORPHINE HYDROCHLORIDE
     Indication: SPINAL OSTEOARTHRITIS
     Dates: start: 20160316, end: 20160317

REACTIONS (4)
  - Activities of daily living impaired [Recovered/Resolved]
  - Headache [Recovered/Resolved]
  - Aura [Recovered/Resolved]
  - Dizziness [Recovered/Resolved]

NARRATIVE: CASE EVENT DATE: 201603
